FAERS Safety Report 21957646 (Version 1)
Quarter: 2023Q1

REPORT INFORMATION
  Report Type: Spontaneous
  Country: US (occurrence: US)
  Receive Date: 20230206
  Receipt Date: 20230206
  Transmission Date: 20230418
  Serious: Yes (Hospitalization, Other)
  Sender: FDA-Public Use
  Company Number: US-PFIZER INC-PV202300017941

PATIENT
  Age: 64 Year
  Sex: Female

DRUGS (6)
  1. DOBUTAMINE HYDROCHLORIDE [Suspect]
     Active Substance: DOBUTAMINE HYDROCHLORIDE
     Indication: Left ventricular failure
     Dosage: UNK, STARTED AT 2.5 MCG/KG/MIN AND THEN INCREASED TO 5 MCG/KG/MIN
  2. APIXABAN [Concomitant]
     Active Substance: APIXABAN
     Dosage: 5 MG, 2X/DAY
  3. FLUDROCORTISONE [Concomitant]
     Active Substance: FLUDROCORTISONE
     Dosage: 0.1 MG, DAILY
  4. ATORVASTATIN [Concomitant]
     Active Substance: ATORVASTATIN
     Dosage: 20 MG, NIGHTLY
  5. CALCIUM ACETATE [Concomitant]
     Active Substance: CALCIUM ACETATE
     Dosage: 667 MG, 3X/DAY, WITH MEALS
  6. CINACALCET [Concomitant]
     Active Substance: CINACALCET
     Dosage: 30 MG, DAILY

REACTIONS (1)
  - Myoclonus [Recovering/Resolving]
